FAERS Safety Report 10433217 (Version 3)
Quarter: 2015Q3

REPORT INFORMATION
  Report Type: Spontaneous
  Country: BR (occurrence: BR)
  Receive Date: 20140905
  Receipt Date: 20150806
  Transmission Date: 20151125
  Serious: Yes (Other)
  Sender: FDA-Public Use
  Company Number: BR-PFIZER INC-2014243645

PATIENT
  Age: 80 Year
  Sex: Female
  Weight: 79 kg

DRUGS (20)
  1. GLUCOFORMIN [Concomitant]
     Active Substance: METFORMIN HYDROCHLORIDE
     Indication: DIABETES MELLITUS
     Dosage: 2 UNITS OF UNSPECIFIED DOSAGE DAILY
     Dates: start: 2002
  2. LOSARTAN. [Concomitant]
     Active Substance: LOSARTAN
     Indication: HYPERTENSION
     Dosage: 1 TABLET (STRENGTH 50 MG), 3X/DAY
     Dates: start: 201403
  3. VITAMIN C [Concomitant]
     Active Substance: ASCORBIC ACID
     Indication: ANAEMIA
     Dosage: 1 TABLET DAILY
  4. DILTIAZEM [Concomitant]
     Active Substance: DILTIAZEM
     Indication: INFARCTION
     Dosage: 1 TABLET (STRENGTH 90MG), 2X/DAY
     Dates: start: 2002
  5. NEUTROFER [Concomitant]
     Active Substance: FERROUS BISGLYCINATE
     Indication: ANAEMIA
     Dosage: 500 MG, 2X/DAY
  6. METFORMIN [Concomitant]
     Active Substance: METFORMIN HYDROCHLORIDE
     Indication: DIABETES MELLITUS
     Dosage: UNK, 2X/DAY
     Dates: start: 2000
  7. XALATAN [Suspect]
     Active Substance: LATANOPROST
     Indication: GLAUCOMA
     Dosage: 1 DROP IN EYE, DAILY
     Route: 047
     Dates: start: 20080902, end: 201406
  8. MILGAMMA /00089801/ [Concomitant]
     Indication: NEUROPATHY PERIPHERAL
     Dosage: 1 TABLET (STRENGTH: 150 MG), DAILY
     Dates: start: 2011
  9. XALATAN [Suspect]
     Active Substance: LATANOPROST
     Indication: INTRAOCULAR PRESSURE INCREASED
     Dosage: 1 DROP IN EYE, 1X/DAY
     Route: 047
     Dates: end: 20150729
  10. CILOSTAZOL. [Concomitant]
     Active Substance: CILOSTAZOL
     Indication: VENOUS OCCLUSION
     Dosage: 1 TABLET (STRENGTH 100 MG), 2X/DAY
     Dates: start: 2010
  11. DIAMICRON MR [Concomitant]
     Active Substance: GLICLAZIDE
     Indication: DIABETES MELLITUS
     Dosage: 1 TABLET (STRENGTH 30 MG), DAILY
     Dates: start: 2000
  12. NATRILIX [Concomitant]
     Active Substance: INDAPAMIDE
     Dosage: UNK, 2X/DAY
  13. CLOPIDOGREL [Concomitant]
     Active Substance: CLOPIDOGREL BISULFATE
     Indication: CARDIAC DISORDER
     Dosage: 1 TABLET (STRENGTH 75MG), DAILY
     Dates: start: 2012
  14. SIMVASTATIN. [Concomitant]
     Active Substance: SIMVASTATIN
     Indication: BLOOD CHOLESTEROL
     Dosage: 20 MG, DAILY
  15. PREGABALIN. [Concomitant]
     Active Substance: PREGABALIN
     Indication: DIABETIC NEUROPATHY
     Dosage: UNK, 2X/DAY
  16. ISOSORBIDE. [Concomitant]
     Active Substance: ISOSORBIDE
     Indication: ANGINA PECTORIS
     Dosage: UNK, 2X/DAY
     Dates: start: 2002
  17. NATRILIX [Concomitant]
     Active Substance: INDAPAMIDE
     Indication: INFARCTION
     Dosage: 1 TABLET (STRENGTH 1.5 MG), DAILY
     Dates: start: 2002
  18. PURAN [Concomitant]
     Active Substance: LEVOTHYROXINE SODIUM
     Indication: THYROID DISORDER
     Dosage: 88 MG, DAILY
     Dates: start: 2006
  19. GABAPENTIN. [Concomitant]
     Active Substance: GABAPENTIN
     Indication: NEUROPATHY PERIPHERAL
     Dosage: 1 TABLET (STRENGHT 300 MG), 3X/DAY
     Dates: start: 2012
  20. OMEPRAZOLE. [Concomitant]
     Active Substance: OMEPRAZOLE
     Indication: GASTRITIS
     Dosage: 20 MG, 4X/DAY
     Dates: start: 2011

REACTIONS (5)
  - Malaise [Unknown]
  - Glaucoma [Unknown]
  - Drug ineffective [Unknown]
  - Visual acuity reduced [Not Recovered/Not Resolved]
  - Eye disorder [Unknown]

NARRATIVE: CASE EVENT DATE: 20140603
